FAERS Safety Report 4685933-3 (Version None)
Quarter: 2005Q2

REPORT INFORMATION
  Report Type: 
  Country: None (occurrence: None)
  Receive Date: 20050606
  Receipt Date: 20050520
  Transmission Date: 20051028
  Serious: Yes (Life-Threatening)
  Sender: FDA-Public Use
  Company Number: 214553

PATIENT
  Age: 55 Year
  Sex: Male
  Weight: 94.8 kg

DRUGS (9)
  1. XOLAIR [Suspect]
     Indication: BRONCHOSPASM
     Dosage: UNK
     Route: 065
     Dates: start: 20050209, end: 20050209
  2. ADVAIR (SALMETEROL XINAFOATE, FLUTICASONE PROPIONATE) [Concomitant]
  3. NASACORT AQ (TRIAMCINOLONE ACETONIDE) [Concomitant]
  4. UNIPHYL [Concomitant]
  5. SINGULAIR [Concomitant]
  6. MAXAIR [Concomitant]
  7. DIOVAN HCT [Concomitant]
  8. CLONIDINE [Concomitant]
  9. QVAR (BECLOMETHASONE DIPROPIONATE) [Concomitant]

REACTIONS (5)
  - ANXIETY [None]
  - CHEST DISCOMFORT [None]
  - DRUG HYPERSENSITIVITY [None]
  - PALLOR [None]
  - RESPIRATORY DISTRESS [None]
